FAERS Safety Report 15783535 (Version 2)
Quarter: 2019Q1

REPORT INFORMATION
  Report Type: Spontaneous
  Country: IT (occurrence: IT)
  Receive Date: 20190102
  Receipt Date: 20190116
  Transmission Date: 20190417
  Serious: Yes (Other)
  Sender: FDA-Public Use
  Company Number: PHHY2018IT198194

PATIENT
  Age: 69 Year
  Sex: Male

DRUGS (2)
  1. COLCHICINE. [Interacting]
     Active Substance: COLCHICINE
     Indication: PERICARDITIS
     Dosage: 0.5 MG, TID
     Route: 065
  2. ATORVASTATIN [Suspect]
     Active Substance: ATORVASTATIN
     Indication: PRODUCT USED FOR UNKNOWN INDICATION
     Dosage: UNK
     Route: 065

REACTIONS (6)
  - Product use in unapproved indication [Unknown]
  - Ischaemic stroke [Recovered/Resolved]
  - Rhabdomyolysis [Recovered/Resolved]
  - Drug interaction [Recovering/Resolving]
  - Muscular weakness [Recovering/Resolving]
  - Neuromyopathy [Recovered/Resolved]
